FAERS Safety Report 9839874 (Version 1)
Quarter: 2014Q1

REPORT INFORMATION
  Report Type: Spontaneous
  Country: DK (occurrence: DK)
  Receive Date: 20140124
  Receipt Date: 20140124
  Transmission Date: 20141002
  Serious: Yes (Hospitalization)
  Sender: FDA-Public Use
  Company Number: PHHY2014DK005405

PATIENT
  Age: 46 Year
  Sex: Female

DRUGS (20)
  1. CERTICAN [Suspect]
     Indication: PROPHYLAXIS AGAINST TRANSPLANT REJECTION
     Dosage: 1 MG, BID
     Route: 048
     Dates: start: 20110621, end: 20110705
  2. CERTICAN [Suspect]
     Indication: IMMUNOSUPPRESSION
     Dosage: 1.5 MG, BID
     Route: 048
     Dates: start: 20110706, end: 20120717
  3. CERTICAN [Suspect]
     Dosage: 1 MG, BID
     Route: 048
     Dates: start: 20120718, end: 20120802
  4. CERTICAN [Suspect]
     Dosage: 1.25 MG, BID
     Route: 048
     Dates: start: 20120803, end: 20130604
  5. CERTICAN [Suspect]
     Dosage: 1 MG, BID
     Route: 048
     Dates: start: 20130605, end: 20131002
  6. CERTICAN [Suspect]
     Dosage: 0.75 MG, BID
     Dates: start: 20131003, end: 20131209
  7. INSULATARD [Concomitant]
     Indication: DIABETES MELLITUS
     Dosage: UNK UKN, UNK
  8. INSUMAN RAPID [Concomitant]
     Indication: DIABETES MELLITUS
     Dosage: UNK UKN, UNK
  9. ENACODAN [Concomitant]
     Indication: HYPERTENSION
     Dosage: UNK UKN, UNK
     Route: 048
  10. CELLCEPT [Concomitant]
     Indication: IMMUNOSUPPRESSION
     Dosage: UNK UKN, UNK
  11. PANTOPRAZOL ACTAVIS [Concomitant]
     Dosage: UNK UKN, UNK
     Route: 048
  12. PRAVASTATINENATRIUM GF [Concomitant]
     Indication: HYPERCHOLESTEROLAEMIA
     Dosage: UNK UKN, UNK
     Route: 048
  13. SANDIMMUN [Concomitant]
     Indication: IMMUNOSUPPRESSION
     Dosage: UNK UKN, UNK
  14. CIFIN [Concomitant]
     Indication: ANTIBIOTIC THERAPY
     Dosage: UNK UKN, UNK
     Route: 048
     Dates: start: 20131105, end: 20131211
  15. CIFIN [Concomitant]
     Route: 048
     Dates: start: 20131127, end: 20131211
  16. TOBRAMYCIN [Concomitant]
     Indication: ANTIBIOTIC THERAPY
     Dosage: UNK UKN, UNK
     Route: 048
     Dates: start: 20131127, end: 20131203
  17. UNIKALK PLUS [Concomitant]
     Dosage: UNK UKN, UNK
  18. AQUADEKS [Concomitant]
     Dosage: UNK UKN, UNK
  19. HEMOGEN [Concomitant]
     Dosage: UNK UKN, UNK
  20. TOBI PODHALER [Concomitant]
     Dosage: UNK UKN, UNK

REACTIONS (4)
  - Lung disorder [Unknown]
  - Lung infiltration [Recovering/Resolving]
  - Pneumonitis [Recovering/Resolving]
  - Dyspnoea [Recovering/Resolving]
